FAERS Safety Report 5499285-2 (Version None)
Quarter: 2007Q4

REPORT INFORMATION
  Report Type: 
  Country: None (occurrence: None)
  Receive Date: 20071026
  Receipt Date: 20071015
  Transmission Date: 20080405
  Serious: Yes (Hospitalization, Congenital Anomaly)
  Sender: FDA-Public Use
  Company Number: US-AMGEN-US248008

PATIENT
  Sex: Male

DRUGS (10)
  1. ENBREL [Suspect]
     Indication: ANKYLOSING SPONDYLITIS
     Route: 064
     Dates: start: 20050818, end: 20050914
  2. PRENATAL VITAMINS [Concomitant]
     Route: 064
     Dates: start: 20050920, end: 20060223
  3. FLAX SEED OIL [Concomitant]
     Route: 064
     Dates: start: 20051107, end: 20060223
  4. DIPHENHYDRAMINE HCL [Concomitant]
     Route: 064
     Dates: start: 20051227, end: 20051229
  5. PREDNISONE [Concomitant]
     Route: 064
     Dates: start: 20051227, end: 20051227
  6. INFLUENZA VACCINE [Concomitant]
     Route: 064
     Dates: start: 20051122, end: 20051122
  7. HEPARIN [Concomitant]
     Route: 064
     Dates: start: 20060223, end: 20060305
  8. ANTIBIOTIC NOS [Concomitant]
     Route: 064
     Dates: start: 20060223, end: 20060305
  9. PREDNISONE [Concomitant]
     Route: 064
     Dates: start: 20060223, end: 20060305
  10. TYLENOL (CAPLET) [Concomitant]
     Route: 064
     Dates: start: 20050818, end: 20060305

REACTIONS (3)
  - ATRIAL SEPTAL DEFECT [None]
  - INGUINAL HERNIA [None]
  - STRABISMUS [None]
